FAERS Safety Report 24979570 (Version 1)
Quarter: 2025Q1

REPORT INFORMATION
  Report Type: Spontaneous
  Country: US (occurrence: US)
  Receive Date: 20250218
  Receipt Date: 20250218
  Transmission Date: 20250409
  Serious: No
  Sender: ELI LILLY AND COMPANY
  Company Number: US-ELI_LILLY_AND_COMPANY-US202502012357

PATIENT
  Age: 64 Year

DRUGS (4)
  1. INSULIN LISPRO [Suspect]
     Active Substance: INSULIN LISPRO
     Indication: Type 2 diabetes mellitus
     Route: 065
     Dates: start: 1980
  2. INSULIN LISPRO [Suspect]
     Active Substance: INSULIN LISPRO
     Route: 065
     Dates: start: 1980
  3. INSULIN LISPRO [Suspect]
     Active Substance: INSULIN LISPRO
     Route: 065
     Dates: start: 1980
  4. LANTUS [Concomitant]
     Active Substance: INSULIN GLARGINE
     Dosage: 14 U, DAILY

REACTIONS (2)
  - Fibromyalgia [Unknown]
  - Incorrect product administration duration [Unknown]

NARRATIVE: CASE EVENT DATE: 19980101
